FAERS Safety Report 15502939 (Version 1)
Quarter: 2018Q4

REPORT INFORMATION
  Report Type: Spontaneous
  Country: US (occurrence: US)
  Receive Date: 20181008
  Receipt Date: 20181008
  Transmission Date: 20190205
  Serious: Yes (Disabling, Other)
  Sender: FDA-Public Use
  Company Number: None

PATIENT
  Age: 29 Year
  Sex: Female
  Weight: 42.3 kg

DRUGS (9)
  1. GINGER. [Concomitant]
     Active Substance: GINGER
  2. TUMERIC [Concomitant]
     Active Substance: HERBALS\TURMERIC
  3. WRIST SPLINT [Concomitant]
  4. MAGNESIUM SUPPLEMENT [Concomitant]
  5. CALCIUM SUPPLEMENT [Concomitant]
     Active Substance: CALCIUM
  6. LEVOFLOXACIN 750 MG TABLET ^GENERIC FOR: LEVAQUIN^ [Suspect]
     Active Substance: LEVOFLOXACIN
     Indication: APPENDICITIS
     Dosage: ?          QUANTITY:7 DF DOSAGE FORM;?
     Route: 048
     Dates: start: 20180924, end: 20180926
  7. EPSOM SALT BATHS [Concomitant]
  8. HIGH VEGETABLE  BLENDING INTAKE [Concomitant]
  9. RESTRICTED DIET [Concomitant]

REACTIONS (12)
  - Tendon rupture [None]
  - Dizziness [None]
  - Diarrhoea [None]
  - Feeling abnormal [None]
  - Fatigue [None]
  - Arthralgia [None]
  - Loss of personal independence in daily activities [None]
  - Haematochezia [None]
  - Delirium [None]
  - Chromaturia [None]
  - Muscle tightness [None]
  - Myalgia [None]

NARRATIVE: CASE EVENT DATE: 20180926
